FAERS Safety Report 4457960-2 (Version None)
Quarter: 2004Q3

REPORT INFORMATION
  Report Type: 
  Country: None (occurrence: None)
  Receive Date: 20040924
  Receipt Date: 20040513
  Transmission Date: 20050211
  Serious: Yes (Other)
  Sender: FDA-Public Use
  Company Number: US-AMGEN-US076416

PATIENT
  Sex: Male

DRUGS (5)
  1. PROCRIT [Suspect]
     Indication: PRE-EXISTING DISEASE
     Route: 058
     Dates: start: 20031010, end: 20040430
  2. RIBAVIRIN [Concomitant]
     Dates: start: 20031010, end: 20040226
  3. PEGULATED INTERFERON ALFA-2B [Concomitant]
     Dates: start: 20031010, end: 20040426
  4. NIFEDIPINE [Concomitant]
  5. HYDROCHLOROTHIAZIDE [Concomitant]

REACTIONS (2)
  - ANTI-ERYTHROPOIETIN ANTIBODY POSITIVE [None]
  - BONE MARROW DEPRESSION [None]
